FAERS Safety Report 7679401-4 (Version None)
Quarter: 2011Q3

REPORT INFORMATION
  Report Type: 
  Country: None (occurrence: None)
  Receive Date: 20110812
  Receipt Date: 20110801
  Transmission Date: 20111222
  Serious: Yes (Hospitalization, Other)
  Sender: FDA-Public Use
  Company Number: JP-UCBSA-009753

PATIENT
  Sex: Female

DRUGS (15)
  1. CERTOLIZUMAB PEGOL [Suspect]
     Route: 058
     Dates: start: 20110101, end: 20110527
  2. INDOMETHACIN [Concomitant]
     Dosage: ADEQUATE DOSE AS NEEDED
     Dates: start: 20090918, end: 20101231
  3. CERTOLIZUMAB PEGOL [Suspect]
     Route: 058
     Dates: end: 20110401
  4. DICLOFENAC SODIUM [Concomitant]
     Dosage: DAILY DOSE:75MG
     Dates: start: 20090707
  5. ATORVASTATIN CALCIUM [Concomitant]
     Dosage: DAILY DOSE:10MG
     Dates: start: 20101210
  6. CERTOLIZUMAB PEGOL [Suspect]
     Indication: RHEUMATOID ARTHRITIS
     Dosage: 275-08-003
     Route: 058
     Dates: start: 20090820, end: 20090101
  7. CERTOLIZUMAB PEGOL [Suspect]
     Route: 058
     Dates: start: 20110101, end: 20110610
  8. KETOPROFEN [Concomitant]
     Dosage: ADEQUATE DOSE AS NEEDED
     Dates: start: 20090724, end: 20100819
  9. PREGABALIN [Concomitant]
     Dosage: DAILY DOSE:150MG
     Dates: start: 20110304
  10. BREDININ [Suspect]
     Indication: RHEUMATOID ARTHRITIS
     Dosage: DAILY DOSE:200MG
     Route: 048
     Dates: start: 20110304, end: 20110415
  11. REBAMIPIDE [Concomitant]
     Dosage: DAILY DOSE :300MG
  12. BETAMETHASONE_D-CHLORPHENIRAMINE MALEATE [Concomitant]
     Dosage: 2 TABLETS
  13. LANSOPRAZOLE [Concomitant]
     Dosage: DAILY DOSE :15MG
     Dates: start: 20100901
  14. CERTOLIZUMAB PEGOL [Suspect]
     Route: 058
     Dates: start: 20091211
  15. BETAMETHASONE_D-CHLORPHENIRAMINE MALEATE [Concomitant]
     Dosage: 2 TABLETS

REACTIONS (3)
  - PNEUMONIA BACTERIAL [None]
  - LUMBAR SPINAL STENOSIS [None]
  - INTERVERTEBRAL DISC PROTRUSION [None]
